FAERS Safety Report 13870764 (Version 1)
Quarter: 2017Q3

REPORT INFORMATION
  Report Type: Report from Study
  Country: None (occurrence: US)
  Receive Date: 20170816
  Receipt Date: 20170816
  Transmission Date: 20171127
  Serious: Yes (Hospitalization, Other)
  Sender: FDA-Public Use
  Company Number: US-ABBVIE-17K-163-1973501-00

PATIENT
  Age: 63 Year
  Sex: Male
  Weight: 95.34 kg

DRUGS (5)
  1. BACTRIM [Suspect]
     Active Substance: SULFAMETHOXAZOLE\TRIMETHOPRIM
     Indication: PROSTATOMEGALY
     Route: 048
     Dates: start: 201708, end: 201708
  2. METHOTREXATE. [Concomitant]
     Active Substance: METHOTREXATE
     Indication: PRODUCT USED FOR UNKNOWN INDICATION
  3. FOLIC ACID. [Concomitant]
     Active Substance: FOLIC ACID
     Indication: PRODUCT USED FOR UNKNOWN INDICATION
  4. HUMIRA [Suspect]
     Active Substance: ADALIMUMAB
     Indication: PSORIASIS
     Route: 058
     Dates: start: 2016, end: 201612
  5. HUMIRA [Suspect]
     Active Substance: ADALIMUMAB
     Route: 058
     Dates: start: 201701, end: 201708

REACTIONS (6)
  - Dysuria [Recovered/Resolved]
  - Urethral haemorrhage [Recovered/Resolved]
  - Diverticulitis [Recovered/Resolved]
  - Prostatomegaly [Not Recovered/Not Resolved]
  - Seizure [Recovered/Resolved]
  - Stomatitis [Recovering/Resolving]

NARRATIVE: CASE EVENT DATE: 201612
